FAERS Safety Report 19207235 (Version 1)
Quarter: 2021Q2

REPORT INFORMATION
  Report Type: Spontaneous
  Country: CN (occurrence: CN)
  Receive Date: 20210501
  Receipt Date: 20210501
  Transmission Date: 20210717
  Serious: Yes (Death)
  Sender: FDA-Public Use
  Company Number: CN-ASTRAZENECA-2021A373924

PATIENT
  Age: 58 Year
  Sex: Male
  Weight: 60 kg

DRUGS (2)
  1. IMFINZI [Suspect]
     Active Substance: DURVALUMAB
     Indication: NON-SMALL CELL LUNG CANCER STAGE III
     Dosage: DOSE AND FREQUENCY UNKNOWN
     Route: 042
     Dates: start: 20200924
  2. IMFINZI [Suspect]
     Active Substance: DURVALUMAB
     Indication: NON-SMALL CELL LUNG CANCER STAGE III
     Dosage: 620.0MG EVERY CYCLE
     Route: 042
     Dates: end: 20201016

REACTIONS (1)
  - Death [Fatal]
